FAERS Safety Report 8677960 (Version 3)
Quarter: 2012Q4

REPORT INFORMATION
  Report Type: 
  Country: US (occurrence: US)
  Receive Date: 20120723
  Receipt Date: 20121227
  Transmission Date: 20130627
  Serious: Yes (Hospitalization, Other)
  Sender: FDA-Public Use
  Company Number: US-ENDO PHARMACEUTICALS INC.-HCDA20120051

PATIENT
  Age: 65 None
  Sex: Female
  Weight: 67.65 kg

DRUGS (1)
  1. HYDROCODONE/ACETAMINOPHEN 10MG/325MG [Suspect]
     Indication: PAIN
     Dosage: 10MG/325MG
     Route: 048
     Dates: start: 20120320, end: 20120322

REACTIONS (7)
  - Renal failure acute [Unknown]
  - Urinary incontinence [Not Recovered/Not Resolved]
  - Constipation [Unknown]
  - Urinary retention [Recovered/Resolved]
  - Cellulitis [Unknown]
  - Bladder pain [Unknown]
  - Oedema peripheral [Unknown]
